FAERS Safety Report 15898360 (Version 1)
Quarter: 2019Q1

REPORT INFORMATION
  Report Type: Spontaneous
  Country: GB (occurrence: GB)
  Receive Date: 20190201
  Receipt Date: 20190201
  Transmission Date: 20190417
  Serious: Yes (Hospitalization, Other)
  Sender: FDA-Public Use
  Company Number: GB-TEVA-2019-GB-1005964

PATIENT
  Age: 75 Year
  Sex: Female
  Weight: 82.55 kg

DRUGS (3)
  1. AVAMYS [Concomitant]
     Active Substance: FLUTICASONE FUROATE
  2. SYMBICORT [Concomitant]
     Active Substance: BUDESONIDE\FORMOTEROL FUMARATE DIHYDRATE
  3. CLARITHROMYCIN. [Suspect]
     Active Substance: CLARITHROMYCIN
     Indication: SINUSITIS
     Dosage: 1000 MILLIGRAM DAILY;
     Route: 048
     Dates: start: 20181230, end: 20181231

REACTIONS (3)
  - Disorganised speech [Recovered/Resolved]
  - Dyspnoea [Recovered/Resolved]
  - Hallucination [Recovered/Resolved]

NARRATIVE: CASE EVENT DATE: 20181230
